FAERS Safety Report 7802822-3 (Version None)
Quarter: 2011Q4

REPORT INFORMATION
  Report Type: 
  Country: None (occurrence: None)
  Receive Date: 20111007
  Receipt Date: 20111004
  Transmission Date: 20120403
  Serious: Yes (Disabling)
  Sender: FDA-Public Use
  Company Number: GB-MERCK-1110GBR00014

PATIENT
  Age: 41 Year
  Sex: Female
  Weight: 121 kg

DRUGS (6)
  1. SIMVASTATIN [Concomitant]
     Route: 048
     Dates: start: 20110606
  2. JANUVIA [Suspect]
     Route: 048
     Dates: start: 20110727
  3. TRAMADOL HYDROCHLORIDE [Concomitant]
     Route: 048
     Dates: start: 20110912
  4. CODEINE PHOSPHATE [Concomitant]
     Route: 065
     Dates: start: 20110912, end: 20110915
  5. GLIMEPIRIDE [Concomitant]
     Route: 065
     Dates: start: 20110727
  6. METFORMIN [Concomitant]
     Route: 065
     Dates: start: 20110606

REACTIONS (2)
  - ARTHROPATHY [None]
  - MYALGIA [None]
